FAERS Safety Report 25544558 (Version 1)
Quarter: 2025Q3

REPORT INFORMATION
  Report Type: Spontaneous
  Country: TW (occurrence: TW)
  Receive Date: 20250711
  Receipt Date: 20250711
  Transmission Date: 20251021
  Serious: Yes (Hospitalization, Other)
  Sender: FRESENIUS KABI
  Company Number: TW-FreseniusKabi-FK202509232

PATIENT
  Age: 20 Year
  Sex: Male
  Weight: 111.3 kg

DRUGS (27)
  1. ETOPOSIDE [Suspect]
     Active Substance: ETOPOSIDE
     Indication: Primary mediastinal large B-cell lymphoma
     Dates: start: 20250311, end: 20250318
  2. ETOPOSIDE [Suspect]
     Active Substance: ETOPOSIDE
     Dates: start: 20250408, end: 20250414
  3. ETOPOSIDE [Suspect]
     Active Substance: ETOPOSIDE
     Route: 041
     Dates: start: 20250507, end: 20250510
  4. ETOPOSIDE [Suspect]
     Active Substance: ETOPOSIDE
     Route: 041
     Dates: start: 20250530, end: 20250605
  5. MABTHERA [Suspect]
     Active Substance: RITUXIMAB
     Indication: Primary mediastinal large B-cell lymphoma
     Dates: start: 20250311, end: 20250318
  6. MABTHERA [Suspect]
     Active Substance: RITUXIMAB
     Dates: start: 20250408, end: 20250414
  7. MABTHERA [Suspect]
     Active Substance: RITUXIMAB
     Route: 041
     Dates: start: 20250506, end: 20250506
  8. MABTHERA [Suspect]
     Active Substance: RITUXIMAB
     Route: 041
     Dates: start: 20250530, end: 20250605
  9. VINCRISTINE SULFATE [Suspect]
     Active Substance: VINCRISTINE SULFATE
     Indication: Primary mediastinal large B-cell lymphoma
     Dates: start: 20250311, end: 20250318
  10. VINCRISTINE SULFATE [Suspect]
     Active Substance: VINCRISTINE SULFATE
     Dates: start: 20250408, end: 20250414
  11. VINCRISTINE SULFATE [Suspect]
     Active Substance: VINCRISTINE SULFATE
     Route: 041
     Dates: start: 20250507, end: 20250510
  12. VINCRISTINE SULFATE [Suspect]
     Active Substance: VINCRISTINE SULFATE
     Route: 041
     Dates: start: 20250530, end: 20250605
  13. CYCLOPHOSPHAMIDE [Suspect]
     Active Substance: CYCLOPHOSPHAMIDE
     Indication: Primary mediastinal large B-cell lymphoma
     Dates: start: 20250311, end: 20250318
  14. CYCLOPHOSPHAMIDE [Suspect]
     Active Substance: CYCLOPHOSPHAMIDE
     Dates: start: 20250408, end: 20250414
  15. CYCLOPHOSPHAMIDE [Suspect]
     Active Substance: CYCLOPHOSPHAMIDE
     Route: 041
     Dates: start: 20250512, end: 20250512
  16. CYCLOPHOSPHAMIDE [Suspect]
     Active Substance: CYCLOPHOSPHAMIDE
     Route: 041
     Dates: start: 20250530, end: 20250605
  17. ADRIAMYCIN [Suspect]
     Active Substance: DOXORUBICIN HYDROCHLORIDE
     Indication: Primary mediastinal large B-cell lymphoma
     Dates: start: 20250311, end: 20250318
  18. ADRIAMYCIN [Suspect]
     Active Substance: DOXORUBICIN HYDROCHLORIDE
     Dates: start: 20250408, end: 20250414
  19. ADRIAMYCIN [Suspect]
     Active Substance: DOXORUBICIN HYDROCHLORIDE
     Route: 041
     Dates: start: 20250507, end: 20250510
  20. ADRIAMYCIN [Suspect]
     Active Substance: DOXORUBICIN HYDROCHLORIDE
     Route: 041
     Dates: start: 20250530, end: 20250605
  21. MEDASON FOR INJECTION (METHYLPREDNISOLON E SODIUM SUCCINATE BUFFERED 3 [Concomitant]
     Indication: Primary mediastinal large B-cell lymphoma
     Dates: start: 20250311, end: 20250318
  22. MEDASON FOR INJECTION (METHYLPREDNISOLON E SODIUM SUCCINATE BUFFERED 3 [Concomitant]
     Dates: start: 20250408, end: 20250414
  23. MEDASON FOR INJECTION (METHYLPREDNISOLON E SODIUM SUCCINATE BUFFERED 3 [Concomitant]
     Route: 041
     Dates: start: 20250507, end: 20250511
  24. MEDASON FOR INJECTION (METHYLPREDNISOLON E SODIUM SUCCINATE BUFFERED 3 [Concomitant]
     Route: 041
     Dates: start: 20250530, end: 20250605
  25. MORCASIN TABLETS ^SINPHAR^ (TRIMETHOPRIM/SULFA METHOXAZOLE) [Concomitant]
     Indication: Prophylaxis
     Route: 048
     Dates: start: 20250307
  26. VALTREX TABLETS 500MG [Concomitant]
     Indication: Prophylaxis
     Route: 048
     Dates: start: 20250307
  27. NORVASC [Concomitant]
     Active Substance: AMLODIPINE BESYLATE
     Indication: Hypertension
     Route: 048

REACTIONS (6)
  - Neutropenia [Recovered/Resolved]
  - Leukopenia [Recovered/Resolved]
  - Pyrexia [Recovered/Resolved]
  - Cough [Recovered/Resolved]
  - Oropharyngeal pain [Recovered/Resolved]
  - Rhinorrhoea [Recovered/Resolved]

NARRATIVE: CASE EVENT DATE: 20250327
